FAERS Safety Report 7687206-3 (Version None)
Quarter: 2011Q3

REPORT INFORMATION
  Report Type: 
  Country: None (occurrence: None)
  Receive Date: 20110816
  Receipt Date: 20110801
  Transmission Date: 20111222
  Serious: Yes (Other)
  Sender: FDA-Public Use
  Company Number: US-BAXTER-2011BH025231

PATIENT
  Age: 81 Year
  Sex: Male

DRUGS (2)
  1. DOBUTAMINE HCL [Suspect]
     Indication: CARDIAC STRESS TEST
     Route: 042
  2. ATROPINE SULFATE [Suspect]
     Indication: CARDIAC STRESS TEST
     Route: 042

REACTIONS (4)
  - LACERATION [None]
  - FALL [None]
  - CONFUSIONAL STATE [None]
  - BALANCE DISORDER [None]
